FAERS Safety Report 7871717-1 (Version None)
Quarter: 2011Q4

REPORT INFORMATION
  Report Type: 
  Country: None (occurrence: None)
  Receive Date: 20111029
  Receipt Date: 20110307
  Transmission Date: 20120403
  Serious: No
  Sender: FDA-Public Use
  Company Number: US-AMGEN-USASP2011012958

PATIENT
  Sex: Female

DRUGS (1)
  1. ENBREL [Suspect]
     Indication: PRODUCT USED FOR UNKNOWN INDICATION
     Dosage: UNK

REACTIONS (3)
  - UPPER RESPIRATORY TRACT INFECTION [None]
  - SINUSITIS [None]
  - INJECTION SITE PAIN [None]
